FAERS Safety Report 4807181-6 (Version None)
Quarter: 2005Q4

REPORT INFORMATION
  Report Type: 
  Country: None (occurrence: None)
  Receive Date: 20051024
  Receipt Date: 20050921
  Transmission Date: 20060501
  Serious: Yes (Other)
  Sender: FDA-Public Use
  Company Number: DE-AMGEN-UK151248

PATIENT
  Sex: Female
  Weight: 57 kg

DRUGS (11)
  1. ARANESP [Suspect]
     Indication: DRUG USE FOR UNKNOWN INDICATION
     Route: 042
     Dates: start: 20040101
  2. BLOOD CELLS, PACKED HUMAN [Concomitant]
     Route: 065
     Dates: start: 20050301
  3. DIGOXIN [Concomitant]
     Route: 048
  4. L-THYROXIN [Concomitant]
     Route: 048
  5. ZOLPIDEM TARTRATE [Concomitant]
     Route: 048
  6. GLIBENCLAMIDE [Concomitant]
     Route: 048
  7. CALCITRIOL [Concomitant]
     Route: 048
  8. ZINC [Concomitant]
     Route: 065
  9. CALCIUM CARBONATE [Concomitant]
     Route: 048
  10. VITAMIN B1 AND B6 [Concomitant]
     Route: 065
  11. ASCORBIC ACID [Concomitant]
     Route: 065

REACTIONS (3)
  - ANAEMIA [None]
  - ANTI-ERYTHROPOIETIN ANTIBODY POSITIVE [None]
  - GENERAL PHYSICAL HEALTH DETERIORATION [None]
